FAERS Safety Report 6229225-X (Version None)
Quarter: 2009Q2

REPORT INFORMATION
  Report Type: 
  Country: None (occurrence: None)
  Receive Date: 20090615
  Receipt Date: 20090304
  Transmission Date: 20091009
  Serious: No
  Sender: FDA-Public Use
  Company Number: US-ABBOTT-09P-163-0560943-00

PATIENT
  Sex: Female
  Weight: 70.37 kg

DRUGS (17)
  1. HUMIRA [Suspect]
     Indication: RHEUMATOID ARTHRITIS
     Dosage: PRE-FILLED SYRINGE
     Route: 058
     Dates: start: 20040101, end: 20050101
  2. HUMIRA [Suspect]
     Dosage: PRE-FILLED SYRINGE
     Route: 058
     Dates: start: 20060901, end: 20080101
  3. HUMIRA [Suspect]
     Dosage: PEN, 1 IN 1 WEEKS
     Route: 058
     Dates: start: 20080101
  4. HUMIRA [Suspect]
  5. SPIRIVA [Concomitant]
     Indication: CHRONIC OBSTRUCTIVE PULMONARY DISEASE
     Route: 055
  6. CLONAZEPAM [Concomitant]
     Indication: ANXIETY
     Dosage: 1/2 TAB DAILY
     Route: 048
  7. METFORMIN HYDROCHLORIDE [Concomitant]
     Indication: DIABETES MELLITUS
     Route: 048
  8. CARDIZEM LA [Concomitant]
     Indication: HYPERTENSION
     Route: 048
  9. EFFEXOR XR [Concomitant]
     Indication: ANXIETY
     Route: 048
  10. GLIPIZIDE [Concomitant]
     Indication: DIABETES MELLITUS
     Route: 048
  11. VESICARE [Concomitant]
     Indication: MICTURITION URGENCY
     Dosage: DAILY AT BEDTIME
     Route: 048
  12. LYRICA [Concomitant]
     Indication: FIBROMYALGIA
     Route: 048
  13. METHOTREXATE [Concomitant]
     Indication: RHEUMATOID ARTHRITIS
     Dosage: 5 - 2.5MG TABLETS, WEEKLY
     Route: 048
  14. DETROL LA [Concomitant]
     Indication: MICTURITION URGENCY
     Route: 048
  15. PAROXETINE HCL [Concomitant]
     Indication: DEPRESSION
     Dosage: 1 1/2 TAB DAILY AT BEDTIME
     Route: 048
  16. LASIX [Concomitant]
     Indication: HYPERTENSION
     Route: 048
  17. PROAIR HFA [Concomitant]
     Indication: CHRONIC OBSTRUCTIVE PULMONARY DISEASE
     Dosage: AS REQUIRED
     Route: 055

REACTIONS (6)
  - ARTHRALGIA [None]
  - DRUG EFFECT DECREASED [None]
  - DRUG INEFFECTIVE [None]
  - FEELING HOT [None]
  - JOINT SWELLING [None]
  - RHEUMATOID ARTHRITIS [None]
